FAERS Safety Report 8261797 (Version 3)
Quarter: 2013Q2

REPORT INFORMATION
  Report Type: Spontaneous
  Country: US (occurrence: US)
  Receive Date: 20111123
  Receipt Date: 20130503
  Transmission Date: 20140414
  Serious: No
  Sender: FDA-Public Use
  Company Number: US-BAYER-2011-101851

PATIENT
  Age: 58 Year
  Sex: Male

DRUGS (5)
  1. LEVITRA [Suspect]
     Indication: ERECTILE DYSFUNCTION
     Dosage: 10 MG, PRN
     Route: 048
     Dates: start: 2010
  2. ZOCOR [Concomitant]
  3. LISINOPRIL [Concomitant]
  4. COREG [Concomitant]
  5. ASPIRIN [Concomitant]

REACTIONS (6)
  - Erection increased [Unknown]
  - No adverse event [Unknown]
  - Erectile dysfunction [None]
  - Headache [None]
  - Headache [Recovered/Resolved]
  - Headache [Recovered/Resolved]
